FAERS Safety Report 25682919 (Version 2)
Quarter: 2025Q4

REPORT INFORMATION
  Report Type: Spontaneous
  Country: US (occurrence: US)
  Receive Date: 20250814
  Receipt Date: 20251110
  Transmission Date: 20260117
  Serious: No
  Sender: ABBVIE
  Company Number: US-ABBVIE-6414032

PATIENT
  Age: 64 Year
  Sex: Female
  Weight: 54 kg

DRUGS (4)
  1. BOTOX COSMETIC [Suspect]
     Active Substance: ONABOTULINUMTOXINA
     Indication: Skin wrinkling
     Dosage: TIME INTERVAL: AS NECESSARY: TOTAL 33 UNITS
     Route: 023
     Dates: start: 20250624, end: 20250624
  2. BOTOX COSMETIC [Suspect]
     Active Substance: ONABOTULINUMTOXINA
     Indication: Skin wrinkling
     Dosage: TIME INTERVAL: AS NECESSARY: TOTAL 33 UNITS
     Route: 023
     Dates: start: 20250624, end: 20250624
  3. BOTOX COSMETIC [Suspect]
     Active Substance: ONABOTULINUMTOXINA
     Indication: Skin wrinkling
     Dosage: TIME INTERVAL: AS NECESSARY: TOTAL 33 UNITS
     Route: 023
     Dates: start: 20250624, end: 20250624
  4. ADVICOR [Concomitant]
     Active Substance: LOVASTATIN\NIACIN
     Indication: Product used for unknown indication
     Route: 065

REACTIONS (2)
  - Drug ineffective [Not Recovered/Not Resolved]
  - Multiple use of single-use product [Not Recovered/Not Resolved]

NARRATIVE: CASE EVENT DATE: 20250101
